FAERS Safety Report 17066977 (Version 1)
Quarter: 2019Q4

REPORT INFORMATION
  Report Type: Report from Study
  Country: DE (occurrence: DE)
  Receive Date: 20191122
  Receipt Date: 20191122
  Transmission Date: 20200122
  Serious: Yes (Hospitalization, Other)
  Sender: FDA-Public Use
  Company Number: PHHY2017DE114071

PATIENT
  Sex: Male
  Weight: 74 kg

DRUGS (7)
  1. VOTRIENT [Suspect]
     Active Substance: PAZOPANIB HYDROCHLORIDE
     Dosage: 800 MG, QD
     Route: 048
     Dates: start: 20160720, end: 20161110
  2. LAXOBERAL [Concomitant]
     Active Substance: SODIUM PICOSULFATE
     Indication: FUNCTIONAL GASTROINTESTINAL DISORDER
     Dosage: 5 MG, PRN
     Route: 048
     Dates: start: 20171016
  3. VOTRIENT [Suspect]
     Active Substance: PAZOPANIB HYDROCHLORIDE
     Dosage: 800 MG, QD
     Route: 048
     Dates: end: 20170628
  4. VOTRIENT [Suspect]
     Active Substance: PAZOPANIB HYDROCHLORIDE
     Indication: METASTATIC RENAL CELL CARCINOMA
     Dosage: 800 MG, QD
     Route: 048
     Dates: start: 20160502
  5. VOTRIENT [Suspect]
     Active Substance: PAZOPANIB HYDROCHLORIDE
     Dosage: 800 MG, QD
     Route: 048
     Dates: start: 20161111, end: 20170202
  6. VOTRIENT [Suspect]
     Active Substance: PAZOPANIB HYDROCHLORIDE
     Dosage: 800 MG, QD
     Route: 048
     Dates: start: 20170203
  7. ALVESCO [Concomitant]
     Active Substance: CICLESONIDE
     Indication: PULMONARY FUNCTION TEST DECREASED
     Dosage: 160 MG, QD
     Route: 045
     Dates: start: 20150225

REACTIONS (5)
  - Hypothyroidism [Not Recovered/Not Resolved]
  - Secondary hypothyroidism [Recovering/Resolving]
  - Pneumonia [Recovering/Resolving]
  - Hypertension [Recovered/Resolved]
  - Oedema peripheral [Recovering/Resolving]

NARRATIVE: CASE EVENT DATE: 20160513
